FAERS Safety Report 16752526 (Version 6)
Quarter: 2020Q2

REPORT INFORMATION
  Report Type: Spontaneous
  Country: FR (occurrence: FR)
  Receive Date: 20190828
  Receipt Date: 20200511
  Transmission Date: 20200713
  Serious: Yes (Hospitalization)
  Sender: FDA-Public Use
  Company Number: FR-009507513-1504FRA012942

PATIENT
  Age: 81 Year
  Sex: Male

DRUGS (27)
  1. KALEORID [Concomitant]
     Active Substance: POTASSIUM CHLORIDE
     Indication: PRODUCT USED FOR UNKNOWN INDICATION
     Dosage: UNK
     Route: 065
  2. RIFADIN [Suspect]
     Active Substance: RIFAMPIN
     Indication: BACTERIAL SEPSIS
     Dosage: UNK
     Route: 042
     Dates: start: 20120514, end: 20120611
  3. VENTOLINE (ALBUTEROL) [Concomitant]
     Active Substance: ALBUTEROL
     Indication: PRODUCT USED FOR UNKNOWN INDICATION
     Dosage: DOSE: 2 PUFFS
     Route: 055
  4. FUROSEMIDE. [Concomitant]
     Active Substance: FUROSEMIDE
  5. AMOXICILLIN (+) CLAVULANATE POTASSIUM [Concomitant]
     Active Substance: AMOXICILLIN\CLAVULANATE POTASSIUM
     Dosage: UNK
     Dates: start: 201204, end: 201204
  6. ZYLORIC [Concomitant]
     Active Substance: ALLOPURINOL
  7. MIANSERIN HYDROCHLORIDE [Concomitant]
     Active Substance: MIANSERIN HYDROCHLORIDE
     Indication: PRODUCT USED FOR UNKNOWN INDICATION
     Dosage: UNK
     Route: 065
  8. PREVISCAN [Concomitant]
     Indication: PRODUCT USED FOR UNKNOWN INDICATION
     Dosage: UNK
     Route: 065
  9. AMOXICILLIN. [Suspect]
     Active Substance: AMOXICILLIN
     Indication: BACTERIAL SEPSIS
     Dosage: 1 GRAM, QD
     Route: 042
     Dates: start: 20120524, end: 20120602
  10. VANCOMYCIN [Concomitant]
     Active Substance: VANCOMYCIN
     Dosage: UNK
     Route: 065
     Dates: start: 201205, end: 20120513
  11. AMIKLIN [Concomitant]
     Active Substance: AMIKACIN SULFATE
     Indication: PNEUMONIA
     Dosage: UNK
     Route: 065
     Dates: start: 201204, end: 201204
  12. AXEPIM [Concomitant]
     Active Substance: CEFEPIME HYDROCHLORIDE
     Indication: PNEUMONIA
     Dosage: UNK
     Route: 065
     Dates: start: 201204, end: 201204
  13. ALLOPURINOL. [Concomitant]
     Active Substance: ALLOPURINOL
     Indication: PRODUCT USED FOR UNKNOWN INDICATION
     Dosage: UNK
     Route: 065
  14. CUBICIN [Suspect]
     Active Substance: DAPTOMYCIN
     Indication: BACTERIAL SEPSIS
     Dosage: FORM: POWDER FOR SOLUTION FOR INJECTION
     Route: 042
     Dates: start: 20120514, end: 20120611
  15. ALDACTONE [Concomitant]
     Active Substance: SPIRONOLACTONE
     Indication: PRODUCT USED FOR UNKNOWN INDICATION
     Dosage: UNK
     Route: 065
  16. GENTAMICIN. [Concomitant]
     Active Substance: GENTAMICIN
     Dosage: UNK UNK,UNK
     Route: 065
     Dates: start: 201205, end: 20120513
  17. SERESTA [Concomitant]
     Active Substance: OXAZEPAM
     Indication: PRODUCT USED FOR UNKNOWN INDICATION
     Dosage: UNK
     Route: 065
  18. PIPERACILLIN AND TAZOBACTAM [Concomitant]
     Active Substance: PIPERACILLIN SODIUM\TAZOBACTAM SODIUM
     Indication: PNEUMONIA
     Dosage: UNK
     Route: 065
     Dates: start: 201204, end: 201204
  19. PIPERACILLIN AND TAZOBACTAM [Concomitant]
     Active Substance: PIPERACILLIN SODIUM\TAZOBACTAM SODIUM
     Dosage: UNK
     Dates: start: 201204, end: 201204
  20. HEMIGOXINE NATIVELLE [Concomitant]
     Active Substance: DIGOXIN
  21. LASILIX [Concomitant]
     Active Substance: FUROSEMIDE
     Indication: PRODUCT USED FOR UNKNOWN INDICATION
     Dosage: UNK
     Route: 065
  22. GENTAMICIN SULFATE. [Concomitant]
     Active Substance: GENTAMICIN SULFATE
     Dosage: UNK
     Route: 065
     Dates: start: 201205, end: 20120513
  23. TANAKAN [Concomitant]
     Active Substance: GINKGO
     Indication: PRODUCT USED FOR UNKNOWN INDICATION
     Dosage: UNK
     Route: 065
  24. AUGMENTIN [Concomitant]
     Active Substance: AMOXICILLIN\CLAVULANATE POTASSIUM
     Indication: PNEUMONIA
     Dosage: UNK
     Route: 065
     Dates: start: 201204, end: 201204
  25. DIGOXIN. [Concomitant]
     Active Substance: DIGOXIN
     Indication: PRODUCT USED FOR UNKNOWN INDICATION
     Dosage: 1 DOSAGE FORM, QD
     Route: 065
  26. PENTOXIFYLLINE. [Concomitant]
     Active Substance: PENTOXIFYLLINE
  27. PREVISCAN [Concomitant]
     Dosage: DOSE DEPENDING ON THE INR (TARGET: INR BETWEEN 2 AND 3)
     Route: 065

REACTIONS (2)
  - Hypersensitivity vasculitis [Not Recovered/Not Resolved]
  - Rash [Not Recovered/Not Resolved]

NARRATIVE: CASE EVENT DATE: 20120529
